FAERS Safety Report 5330149-0 (Version None)
Quarter: 2007Q2

REPORT INFORMATION
  Report Type: 
  Country: None (occurrence: None)
  Receive Date: 20070521
  Receipt Date: 20070510
  Transmission Date: 20071010
  Serious: Yes (Hospitalization)
  Sender: FDA-Public Use
  Company Number: US-JNJFOC-20070503121

PATIENT
  Sex: Female
  Weight: 48.6 kg

DRUGS (4)
  1. INFLIXIMAB [Suspect]
     Indication: DRUG USE FOR UNKNOWN INDICATION
     Route: 042
  2. 5-ASA [Concomitant]
     Route: 048
  3. METRONIDAZOLE [Concomitant]
  4. CIPROFLOXACIN [Concomitant]

REACTIONS (2)
  - COLOSTOMY CLOSURE [None]
  - POST PROCEDURAL CELLULITIS [None]
